FAERS Safety Report 9166379 (Version 1)
Quarter: 2013Q1

REPORT INFORMATION
  Report Type: Report from Study
  Country: BR (occurrence: BR)
  Receive Date: 20130315
  Receipt Date: 20130315
  Transmission Date: 20140127
  Serious: Yes (Other)
  Sender: FDA-Public Use
  Company Number: BR-ABBOTT-13P-020-1061732-00

PATIENT
  Sex: Male
  Weight: 72 kg

DRUGS (4)
  1. HUMIRA [Suspect]
     Indication: PSORIATIC ARTHROPATHY
     Route: 058
  2. FOLIC ACID [Concomitant]
     Indication: RHEUMATOID ARTHRITIS
     Route: 048
     Dates: start: 2011
  3. METHOTREXATE [Concomitant]
     Indication: PRODUCT USED FOR UNKNOWN INDICATION
     Route: 048
     Dates: start: 2011
  4. SIMVASTATIN [Concomitant]
     Indication: BLOOD CHOLESTEROL INCREASED
     Dosage: IN THE EVENING
     Route: 048
     Dates: start: 2012

REACTIONS (7)
  - Thrombosis [Not Recovered/Not Resolved]
  - Convulsion [Not Recovered/Not Resolved]
  - Renal impairment [Not Recovered/Not Resolved]
  - Depression [Not Recovered/Not Resolved]
  - Panic disorder [Not Recovered/Not Resolved]
  - Injury [Unknown]
  - Convulsion [Unknown]
